FAERS Safety Report 8596940-2 (Version None)
Quarter: 2012Q3

REPORT INFORMATION
  Report Type: 
  Country: None (occurrence: None)
  Receive Date: 20120815
  Receipt Date: 20120803
  Transmission Date: 20120928
  Serious: Yes (Other)
  Sender: FDA-Public Use
  Company Number: IT-AMGEN-UK226545

PATIENT
  Age: 50 Year
  Sex: Female

DRUGS (9)
  1. PAROXETINE [Concomitant]
     Dosage: 20 MG, QD
     Route: 048
     Dates: start: 20050919
  2. MAGNESIUM HYDROXIDE TAB [Concomitant]
     Dosage: 450 MG, BID
     Route: 048
     Dates: start: 20060710
  3. CINACALCET HYDROCHLORIDE [Suspect]
     Indication: HYPERPARATHYROIDISM SECONDARY
     Dosage: UNK UNK, QD
     Route: 048
     Dates: start: 20070502, end: 20070510
  4. DESLORATADINE [Concomitant]
     Dosage: 5 MG, QD
     Route: 048
     Dates: start: 20070413
  5. CALCITRIOL [Concomitant]
     Dosage: .25 MG, UNK
     Route: 048
     Dates: start: 20070413
  6. FERROUS GLUCONATE [Concomitant]
     Dosage: 62.5 MG, UNK
     Route: 042
     Dates: start: 20061117
  7. SODIUM BICARBONATE [Concomitant]
     Dosage: 1500 MG, BID
     Route: 048
     Dates: start: 20060710
  8. CALCIUM CARBONATE [Concomitant]
     Dosage: 1000 MG, QD
     Route: 048
     Dates: start: 20070205
  9. FOLIC ACID [Concomitant]
     Dosage: 5 MG, UNK
     Route: 048
     Dates: start: 20061117

REACTIONS (1)
  - ABDOMINAL PAIN UPPER [None]
